FAERS Safety Report 4479001-3 (Version None)
Quarter: 2004Q4

REPORT INFORMATION
  Report Type: 
  Country: None (occurrence: None)
  Receive Date: 20041015
  Receipt Date: 20041004
  Transmission Date: 20050328
  Serious: Yes (Life-Threatening, Hospitalization)
  Sender: FDA-Public Use
  Company Number: BRO-007788

PATIENT
  Age: 86 Year
  Sex: Female

DRUGS (1)
  1. PROHANCE [Suspect]
     Indication: NUCLEAR MAGNETIC RESONANCE IMAGING BRAIN
     Dosage: 10 ML   IV    A FEW SECS
     Route: 042
     Dates: start: 20040930, end: 20040930

REACTIONS (1)
  - CARDIO-RESPIRATORY ARREST [None]
